FAERS Safety Report 20428778 (Version 1)
Quarter: 2022Q1

REPORT INFORMATION
  Report Type: Spontaneous
  Country: FR (occurrence: FR)
  Receive Date: 20220204
  Receipt Date: 20220204
  Transmission Date: 20220423
  Serious: Yes (Congenital Anomaly)
  Sender: FDA-Public Use
  Company Number: None

PATIENT
  Age: 1 Day
  Sex: Female

DRUGS (1)
  1. TYSABRI [Suspect]
     Active Substance: NATALIZUMAB
     Indication: Multiple sclerosis
     Route: 064
     Dates: start: 202103, end: 202106

REACTIONS (2)
  - Syndactyly [Not Recovered/Not Resolved]
  - Skin hypoplasia [Not Recovered/Not Resolved]

NARRATIVE: CASE EVENT DATE: 20220101
